FAERS Safety Report 21817448 (Version 1)
Quarter: 2023Q1

REPORT INFORMATION
  Report Type: Spontaneous
  Country: US (occurrence: None)
  Receive Date: 20230104
  Receipt Date: 20230104
  Transmission Date: 20230418
  Serious: Yes (Hospitalization, Other)
  Sender: FDA-Public Use
  Company Number: None

PATIENT
  Age: 53 Year
  Sex: Female
  Weight: 130.95 kg

DRUGS (3)
  1. TPN [Suspect]
     Active Substance: AMINO ACIDS\DEXTROSE\ELECTROLYTES NOS\SOYBEAN OIL
     Indication: Malnutrition
  2. ANTIBIOTICS [Concomitant]
  3. blood thinners [Concomitant]

REACTIONS (4)
  - Infusion related reaction [None]
  - Electric shock sensation [None]
  - Dyskinesia [None]
  - Muscle spasms [None]

NARRATIVE: CASE EVENT DATE: 20221117
